FAERS Safety Report 7571547-4 (Version None)
Quarter: 2011Q2

REPORT INFORMATION
  Report Type: 
  Country: None (occurrence: None)
  Receive Date: 20110624
  Receipt Date: 20110616
  Transmission Date: 20111010
  Serious: Yes (Death, Life-Threatening, Hospitalization)
  Sender: FDA-Public Use
  Company Number: JP-JNJFOC-20110106264

PATIENT
  Sex: Female
  Weight: 57 kg

DRUGS (38)
  1. DOXIL [Suspect]
     Route: 042
     Dates: start: 20101222, end: 20101222
  2. MINOCYCLINE HCL [Suspect]
     Indication: INFECTION
     Route: 041
     Dates: start: 20110129, end: 20110131
  3. BACTRIM [Concomitant]
     Indication: PLATELET COUNT DECREASED
     Route: 041
     Dates: start: 20110117, end: 20110125
  4. SOLU-MEDROL [Concomitant]
     Route: 041
     Dates: start: 20110124, end: 20110126
  5. DALTEPARIN SODIUM [Concomitant]
     Indication: DISSEMINATED INTRAVASCULAR COAGULATION
     Route: 041
     Dates: start: 20110123, end: 20110125
  6. DALTEPARIN SODIUM [Concomitant]
     Route: 041
     Dates: start: 20110131, end: 20110211
  7. RECOMODULIN [Concomitant]
     Indication: DISSEMINATED INTRAVASCULAR COAGULATION
     Route: 041
     Dates: start: 20110125, end: 20110130
  8. GOSHA-JINKI-GAN [Concomitant]
     Indication: NEUROPATHY PERIPHERAL
     Route: 048
     Dates: start: 20080101, end: 20110116
  9. DAI-KENCHU-TO [Concomitant]
     Indication: CONSTIPATION
     Route: 048
     Dates: start: 20080101, end: 20110116
  10. SOLU-MEDROL [Concomitant]
     Indication: INTERSTITIAL LUNG DISEASE
     Route: 041
     Dates: start: 20110131, end: 20110202
  11. SOLU-MEDROL [Concomitant]
     Route: 041
     Dates: start: 20110117, end: 20110119
  12. FUTHAN [Concomitant]
     Route: 041
     Dates: start: 20110123, end: 20110125
  13. PREDNISOLONE [Concomitant]
     Indication: INTERSTITIAL LUNG DISEASE
     Route: 041
     Dates: start: 20110203, end: 20110221
  14. CONCENTRATED HUMAN BLOOD PLATELETS [Concomitant]
     Indication: PLATELET COUNT DECREASED
     Route: 041
     Dates: start: 20110123
  15. NITRAZEPAM [Concomitant]
     Indication: RESTLESSNESS
     Route: 042
     Dates: start: 20110112, end: 20110222
  16. HUMULIN R [Concomitant]
     Indication: DIABETES MELLITUS
     Route: 058
     Dates: start: 20110117, end: 20110221
  17. MUCOSTA [Concomitant]
     Indication: PROPHYLAXIS
     Route: 048
     Dates: start: 20101124, end: 20110117
  18. FUTHAN [Concomitant]
     Indication: DISSEMINATED INTRAVASCULAR COAGULATION
     Route: 041
     Dates: start: 20110123, end: 20110125
  19. DOXIL [Suspect]
     Indication: MALIGNANT PERITONEAL NEOPLASM
     Route: 042
     Dates: start: 20101222, end: 20101222
  20. DOXIL [Suspect]
     Route: 042
     Dates: start: 20101124, end: 20101124
  21. MAGNESIUM OXIDE [Concomitant]
     Indication: CONSTIPATION
     Route: 048
     Dates: start: 20080101, end: 20110117
  22. ZITHROMAX [Concomitant]
     Indication: PROPHYLAXIS
     Route: 048
     Dates: start: 20110117, end: 20110117
  23. VANCOMYCIN HCL [Concomitant]
     Route: 041
     Dates: start: 20110123, end: 20110202
  24. DALTEPARIN SODIUM [Concomitant]
     Route: 041
     Dates: start: 20110123, end: 20110125
  25. NORVASC [Concomitant]
     Indication: HYPERTENSION
     Route: 048
     Dates: end: 20110117
  26. METHYCOBAL [Concomitant]
     Indication: NEUROPATHY PERIPHERAL
     Route: 048
     Dates: start: 20080101, end: 20110117
  27. PREDOPA [Concomitant]
     Route: 041
     Dates: start: 20110117, end: 20110221
  28. NITRAZEPAM [Concomitant]
     Indication: SEDATION
     Route: 042
     Dates: start: 20110112, end: 20110222
  29. VANCOMYCIN HCL [Concomitant]
     Indication: INFECTION
     Route: 041
     Dates: start: 20110123, end: 20110202
  30. BENAMBAX [Concomitant]
     Indication: INTERSTITIAL LUNG DISEASE
     Route: 041
     Dates: start: 20110125
  31. REMINARON [Concomitant]
     Indication: DISSEMINATED INTRAVASCULAR COAGULATION
     Route: 041
     Dates: start: 20110131, end: 20110206
  32. DOXIL [Suspect]
     Indication: OVARIAN CANCER RECURRENT
     Route: 042
     Dates: start: 20101124, end: 20101124
  33. ZOSYN [Suspect]
     Indication: INTERSTITIAL LUNG DISEASE
     Route: 041
     Dates: start: 20110114, end: 20110206
  34. ELASPOL [Concomitant]
     Indication: INTERSTITIAL LUNG DISEASE
     Route: 041
     Dates: start: 20110117, end: 20110123
  35. PREDOPA [Concomitant]
     Indication: BLOOD PRESSURE DECREASED
     Route: 041
     Dates: start: 20110117, end: 20110221
  36. MINOCYCLINE HCL [Suspect]
     Indication: PYREXIA
     Route: 041
     Dates: start: 20110129, end: 20110131
  37. BACTRIM [Concomitant]
     Indication: INTERSTITIAL LUNG DISEASE
     Route: 041
     Dates: start: 20110117, end: 20110125
  38. FLUCONAZOLE [Concomitant]
     Indication: FUNGAL INFECTION
     Route: 042
     Dates: start: 20110128, end: 20110131

REACTIONS (13)
  - INTERSTITIAL LUNG DISEASE [None]
  - PANCYTOPENIA [None]
  - BONE MARROW FAILURE [None]
  - DEHYDRATION [None]
  - DISSEMINATED INTRAVASCULAR COAGULATION [None]
  - CARDIAC FAILURE [None]
  - DEEP VEIN THROMBOSIS [None]
  - MALAISE [None]
  - ANURIA [None]
  - RESTLESSNESS [None]
  - BLOOD PRESSURE DECREASED [None]
  - HEPATIC FUNCTION ABNORMAL [None]
  - DECREASED APPETITE [None]
